FAERS Safety Report 7510462-9 (Version None)
Quarter: 2011Q2

REPORT INFORMATION
  Report Type: 
  Country: None (occurrence: None)
  Receive Date: 20110527
  Receipt Date: 20110524
  Transmission Date: 20111010
  Serious: Yes (Other)
  Sender: FDA-Public Use
  Company Number: US-PFIZER INC-2011022168

PATIENT
  Sex: Female
  Weight: 102 kg

DRUGS (3)
  1. ABILIFY [Concomitant]
     Dosage: UNK
  2. PRISTIQ [Suspect]
     Indication: BIPOLAR I DISORDER
     Dosage: 50 MG, DAILY
     Route: 048
     Dates: start: 20101001, end: 20110115
  3. PRISTIQ [Suspect]
     Dosage: 100 MG, 1X/DAY
     Dates: end: 20110115

REACTIONS (2)
  - SUICIDAL IDEATION [None]
  - DEPRESSION [None]
